FAERS Safety Report 19108371 (Version 1)
Quarter: 2021Q2

REPORT INFORMATION
  Report Type: Spontaneous
  Country: US (occurrence: US)
  Receive Date: 20210408
  Receipt Date: 20210408
  Transmission Date: 20210717
  Serious: No
  Sender: FDA-Public Use
  Company Number: None

PATIENT
  Age: 14 Year
  Sex: Male
  Weight: 44 kg

DRUGS (2)
  1. 0.9% SODIUM CHLORIDE IRRIGATION [Suspect]
     Active Substance: SODIUM CHLORIDE
  2. NO DRUG NAME [Concomitant]

REACTIONS (1)
  - Exposure to contaminated device [None]

NARRATIVE: CASE EVENT DATE: 20210401
